FAERS Safety Report 8429305-4 (Version None)
Quarter: 2012Q2

REPORT INFORMATION
  Report Type: 
  Country: None (occurrence: None)
  Receive Date: 20120612
  Receipt Date: 20120607
  Transmission Date: 20120825
  Serious: Yes (Hospitalization)
  Sender: FDA-Public Use
  Company Number: PHEH2012US011531

PATIENT
  Sex: Female

DRUGS (2)
  1. ALENDRONATE SODIUM [Concomitant]
  2. SANDOSTATIN LAR [Suspect]
     Dosage: UNK

REACTIONS (1)
  - FEMUR FRACTURE [None]
